FAERS Safety Report 23702635 (Version 2)
Quarter: 2024Q3

REPORT INFORMATION
  Report Type: Spontaneous
  Country: JP (occurrence: JP)
  Receive Date: 20240403
  Receipt Date: 20240710
  Transmission Date: 20241017
  Serious: Yes (Life-Threatening, Hospitalization)
  Sender: TEVA
  Company Number: JP-TEVA-VS-3177201

PATIENT
  Age: 35 Year
  Sex: Female

DRUGS (4)
  1. PREDNISOLONE [Suspect]
     Active Substance: PREDNISOLONE
     Indication: Antibody test positive
     Dosage: REDUCED AFTER ONSET OF ADR
     Route: 048
  2. PREDNISOLONE [Suspect]
     Active Substance: PREDNISOLONE
     Indication: Antibody test positive
     Dosage: INITIAL DOSE
     Route: 048
  3. METHYLPREDNISOLONE [Suspect]
     Active Substance: METHYLPREDNISOLONE
     Indication: Antibody test positive
     Dosage: RECEIVED PULSE THERAPY
     Route: 065
  4. TACROLIMUS [Suspect]
     Active Substance: TACROLIMUS
     Indication: Antibody test positive
     Route: 048

REACTIONS (5)
  - Drug ineffective [Unknown]
  - Hypotension [Recovered/Resolved]
  - Anaemia [Recovered/Resolved]
  - Haemothorax [Recovered/Resolved]
  - Respiratory distress [Recovered/Resolved]
